APPROVED DRUG PRODUCT: MOMETASONE FUROATE
Active Ingredient: MOMETASONE FUROATE
Strength: 0.05MG/SPRAY
Dosage Form/Route: SPRAY, METERED;NASAL
Application: A211706 | Product #001
Applicant: NASPRESS PHARMACEUTICAL CO LTD
Approved: May 15, 2025 | RLD: No | RS: No | Type: DISCN